FAERS Safety Report 4975420-7 (Version None)
Quarter: 2006Q2

REPORT INFORMATION
  Report Type: 
  Country: None (occurrence: None)
  Receive Date: 20060418
  Receipt Date: 20051104
  Transmission Date: 20061013
  Serious: Yes (Death, Hospitalization)
  Sender: FDA-Public Use
  Company Number: US-MERCK-0511USA00969

PATIENT
  Age: 72 Year
  Sex: Female

DRUGS (10)
  1. VIOXX [Suspect]
     Route: 048
  2. ISOSORBIDE MONONITRATE [Concomitant]
     Route: 065
  3. ZOCOR [Concomitant]
     Route: 065
  4. ZOLOFT [Concomitant]
     Route: 065
  5. ASPIRIN [Concomitant]
     Route: 065
  6. HYDROCODONE GF [Concomitant]
     Route: 065
  7. TEMAZEPAM [Concomitant]
     Route: 065
  8. ZOFRAN [Concomitant]
     Route: 065
  9. ALBUTEROL [Concomitant]
     Route: 065
  10. ATROVENT [Concomitant]
     Route: 065

REACTIONS (10)
  - ACUTE MYOCARDIAL INFARCTION [None]
  - CARDIAC FAILURE CONGESTIVE [None]
  - CHRONIC OBSTRUCTIVE PULMONARY DISEASE [None]
  - HYPOTENSION [None]
  - LUNG INFILTRATION [None]
  - MYOCARDIAL INFARCTION [None]
  - OEDEMA PERIPHERAL [None]
  - RENAL FAILURE ACUTE [None]
  - SEPSIS [None]
  - THYROID CYST [None]
